FAERS Safety Report 8766129 (Version 2)
Quarter: 2013Q4

REPORT INFORMATION
  Report Type: Spontaneous
  Country: US (occurrence: US)
  Receive Date: 20120904
  Receipt Date: 20131101
  Transmission Date: 20140711
  Serious: No
  Sender: FDA-Public Use
  Company Number: US-009507513-2012SP036435

PATIENT
  Sex: Male

DRUGS (1)
  1. ASMANEX [Suspect]
     Indication: ASTHMA
     Dosage: UNK UNK, QD

REACTIONS (2)
  - Drug dose omission [Unknown]
  - Inappropriate schedule of drug administration [Unknown]
